FAERS Safety Report 9415027 (Version 2)
Quarter: 2013Q3

REPORT INFORMATION
  Report Type: Spontaneous
  Country: BR (occurrence: BR)
  Receive Date: 20130723
  Receipt Date: 20130814
  Transmission Date: 20140515
  Serious: Yes (Hospitalization)
  Sender: FDA-Public Use
  Company Number: BR-MERCK-1303BRA013501

PATIENT
  Age: 52 Year
  Sex: Male
  Weight: 130 kg

DRUGS (9)
  1. PEG-INTRON [Suspect]
     Indication: HEPATITIS C
     Dosage: 0.7 ML, QW
     Route: 058
     Dates: start: 20130323, end: 20130801
  2. RIBAVIRIN [Concomitant]
     Indication: HEPATITIS C
     Dosage: 750 MG, Q12H
     Route: 048
     Dates: start: 20130323, end: 20130801
  3. FOLIC ACID [Concomitant]
     Indication: BLOOD IRON
     Dosage: 5 MG, QD
     Dates: start: 20130323
  4. FOLIC ACID [Concomitant]
     Indication: ANAEMIA
  5. OMEPRAZOLE [Concomitant]
     Indication: PROPHYLAXIS
     Dosage: 40 MG, QD
     Route: 048
     Dates: start: 20130323
  6. OMEPRAZOLE [Concomitant]
     Indication: GASTRIC PH
  7. PROPRANOLOL HYDROCHLORIDE [Concomitant]
     Indication: ARRHYTHMIA
     Dosage: 80 MG, ONCE
     Route: 048
     Dates: start: 2000
  8. RIVOTRIL [Concomitant]
     Indication: AGITATION
     Dosage: 2 MG, UNKNOWN
     Route: 048
     Dates: start: 2000
  9. RIVOTRIL [Concomitant]
     Indication: INSOMNIA
     Dosage: 0.5 UNK, UNK
     Route: 048
     Dates: start: 2000

REACTIONS (32)
  - Tachycardia [Recovered/Resolved]
  - Tachycardia [Recovered/Resolved]
  - Syncope [Recovered/Resolved]
  - Syncope [Recovered/Resolved]
  - Joint injury [Recovered/Resolved]
  - Tongue disorder [Recovered/Resolved]
  - Dyspnoea [Recovered/Resolved]
  - Dyspnoea [Recovered/Resolved]
  - Bone pain [Recovered/Resolved]
  - Metabolic disorder [Recovered/Resolved]
  - Hypersomnia [Recovered/Resolved]
  - Injection site bruising [Recovered/Resolved]
  - Feeling of body temperature change [Recovered/Resolved]
  - Crying [Recovered/Resolved]
  - Pallor [Recovered/Resolved]
  - Pain [Recovered/Resolved]
  - Hyperhidrosis [Recovered/Resolved]
  - Abnormal sensation in eye [Recovered/Resolved]
  - Injection site erythema [Recovered/Resolved]
  - Heart rate decreased [Recovered/Resolved]
  - Syncope [Recovered/Resolved]
  - Feeling abnormal [Recovered/Resolved]
  - Syncope [Recovered/Resolved]
  - Insomnia [Recovered/Resolved]
  - Arrhythmia [Recovered/Resolved]
  - Feeling abnormal [Recovered/Resolved]
  - Drug dose omission [Unknown]
  - Asthenia [Recovered/Resolved]
  - Myalgia [Recovered/Resolved]
  - Depression [Recovered/Resolved]
  - Dizziness [Recovered/Resolved]
  - Fatigue [Recovered/Resolved]
